FAERS Safety Report 15526812 (Version 1)
Quarter: 2018Q4

REPORT INFORMATION
  Report Type: Spontaneous
  Country: US (occurrence: US)
  Receive Date: 20181018
  Receipt Date: 20181018
  Transmission Date: 20190205
  Serious: Yes (Other)
  Sender: FDA-Public Use
  Company Number: US-SA-2018SA283570

PATIENT
  Sex: Female

DRUGS (1)
  1. MULTAQ [Suspect]
     Active Substance: DRONEDARONE
     Indication: ARRHYTHMIA
     Dosage: 400 MG, BID

REACTIONS (5)
  - Ventricular tachycardia [Unknown]
  - Loss of consciousness [Unknown]
  - Ventricular extrasystoles [Unknown]
  - Abdominal pain upper [Unknown]
  - Extrasystoles [Unknown]
